FAERS Safety Report 24704912 (Version 2)
Quarter: 2025Q1

REPORT INFORMATION
  Report Type: Report from Study
  Country: CO (occurrence: CO)
  Receive Date: 20241206
  Receipt Date: 20250114
  Transmission Date: 20250409
  Serious: Yes (Death, Hospitalization, Other)
  Sender: ALEXION PHARMACEUTICALS
  Company Number: CO-AstraZeneca-CH-00751710A

PATIENT
  Age: 45 Year
  Weight: 64 kg

DRUGS (1)
  1. DURVALUMAB [Suspect]
     Active Substance: DURVALUMAB
     Indication: Bile duct cancer
     Dosage: 1500 MILLIGRAM, Q3W

REACTIONS (4)
  - Haemoglobin decreased [Unknown]
  - Pneumonia [Unknown]
  - Fluid retention [Unknown]
  - Death [Fatal]
